FAERS Safety Report 16794660 (Version 1)
Quarter: 2019Q3

REPORT INFORMATION
  Report Type: Report from Study
  Country: US (occurrence: US)
  Receive Date: 20190911
  Receipt Date: 20190911
  Transmission Date: 20191005
  Serious: Yes (Other)
  Sender: FDA-Public Use
  Company Number: US-BRISTOL-MYERS SQUIBB COMPANY-BMS-2019-085691

PATIENT
  Age: 70 Year
  Sex: Female

DRUGS (1)
  1. ABATACEPT [Suspect]
     Active Substance: ABATACEPT
     Indication: PRODUCT USED FOR UNKNOWN INDICATION
     Route: 065

REACTIONS (9)
  - Chest pain [Unknown]
  - Renal failure [Unknown]
  - Upper limb fracture [Unknown]
  - Generalised oedema [Unknown]
  - Coma [Unknown]
  - Liver disorder [Unknown]
  - Fall [Unknown]
  - Pneumonia [Unknown]
  - Incoherent [Unknown]
